FAERS Safety Report 6885908-X (Version None)
Quarter: 2010Q3

REPORT INFORMATION
  Report Type: 
  Country: None (occurrence: None)
  Receive Date: 20100729
  Receipt Date: 20080624
  Transmission Date: 20110219
  Serious: No
  Sender: FDA-Public Use
  Company Number: US-PFIZER INC-2008053643

PATIENT
  Sex: Female

DRUGS (3)
  1. CELEBREX [Suspect]
     Indication: PAIN
     Route: 048
     Dates: start: 20080601, end: 20080601
  2. HYDROCODONE BITARTRATE [Concomitant]
  3. EFFEXOR XR [Concomitant]

REACTIONS (1)
  - MALAISE [None]
